FAERS Safety Report 20730610 (Version 3)
Quarter: 2022Q2

REPORT INFORMATION
  Report Type: Spontaneous
  Country: US (occurrence: US)
  Receive Date: 20220420
  Receipt Date: 20220510
  Transmission Date: 20220721
  Serious: Yes (Hospitalization, Other)
  Sender: FDA-Public Use
  Company Number: US-Vifor (International) Inc.-VIT-2022-02575

PATIENT
  Age: 80 Year
  Sex: Female
  Weight: 69.7 kg

DRUGS (3)
  1. MIRCERA [Suspect]
     Active Substance: METHOXY POLYETHYLENE GLYCOL-EPOETIN BETA
     Indication: Anaemia
     Dosage: 7TH DOSE
     Route: 042
     Dates: start: 20220312, end: 20220312
  2. MIRCERA [Suspect]
     Active Substance: METHOXY POLYETHYLENE GLYCOL-EPOETIN BETA
     Dosage: 8TH DOSE
     Route: 042
     Dates: start: 20220326, end: 20220326
  3. VENOFER [Suspect]
     Active Substance: IRON SUCROSE
     Indication: Product used for unknown indication
     Route: 042
     Dates: start: 2022

REACTIONS (6)
  - Drug hypersensitivity [Unknown]
  - Bruxism [Unknown]
  - Unresponsive to stimuli [Unknown]
  - Apnoea [Unknown]
  - Presyncope [Unknown]
  - Back pain [Unknown]

NARRATIVE: CASE EVENT DATE: 20220312
